FAERS Safety Report 18703569 (Version 1)
Quarter: 2021Q1

REPORT INFORMATION
  Report Type: Spontaneous
  Country: US (occurrence: US)
  Receive Date: 20210105
  Receipt Date: 20210105
  Transmission Date: 20210419
  Serious: Yes (Other)
  Sender: FDA-Public Use
  Company Number: US-BAUSCH-BL-2020-039061

PATIENT
  Age: 75 Year
  Sex: Female

DRUGS (1)
  1. LEADER EYE WASH [Suspect]
     Active Substance: WATER
     Indication: EYE IRRIGATION
     Dosage: AS DIRECTED IN BOTH EYES
     Route: 047
     Dates: start: 202012, end: 202012

REACTIONS (1)
  - Herpes ophthalmic [Unknown]

NARRATIVE: CASE EVENT DATE: 202012
